FAERS Safety Report 6674535-5 (Version None)
Quarter: 2010Q2

REPORT INFORMATION
  Report Type: 
  Country: None (occurrence: None)
  Receive Date: 20100409
  Receipt Date: 20100331
  Transmission Date: 20101027
  Serious: Yes (Hospitalization)
  Sender: FDA-Public Use
  Company Number: DL2010-0281

PATIENT
  Age: 24 Year
  Sex: Female

DRUGS (4)
  1. MIFEPRISTONE (MIFEPREX) [Suspect]
     Indication: ABORTION INDUCED
     Dosage: 200 MG, ORAL
     Route: 048
     Dates: start: 20100308
  2. MISOPROSTOL [Suspect]
     Dosage: 800 MCG, BUCCAL; 200 MCG TID X 4 DAYS
     Route: 002
     Dates: start: 20100322
  3. MISOPROSTOL [Suspect]
     Dosage: 800 MCG, BUCCAL; 200 MCG TID X 4 DAYS
     Route: 002
     Dates: start: 20100309
  4. DOXYCYCLINE [Concomitant]

REACTIONS (1)
  - UTERINE HAEMORRHAGE [None]
